FAERS Safety Report 24041099 (Version 2)
Quarter: 2024Q3

REPORT INFORMATION
  Report Type: Spontaneous
  Country: CA (occurrence: CA)
  Receive Date: 20240702
  Receipt Date: 20240925
  Transmission Date: 20241017
  Serious: Yes (Death)
  Sender: HLS THERAPEUTICS
  Company Number: CA-HLS-202401558

PATIENT
  Age: 57 Year
  Sex: Male

DRUGS (20)
  1. CLOZAPINE [Suspect]
     Active Substance: CLOZAPINE
     Indication: Product used for unknown indication
     Dosage: TABLETS DOSAGE FORM
     Route: 065
  2. ATORVASTATIN [Concomitant]
     Active Substance: ATORVASTATIN
     Dosage: 1 EVERY 1 DAYS?AMOUNT: 20 MILLIGRAM?TABLETS DOSAGE FORM
     Route: 048
  3. BISOPROLOL [Concomitant]
     Active Substance: BISOPROLOL\BISOPROLOL FUMARATE
     Indication: Schizophrenia
     Dosage: AMOUNT: 350 MILLIGRAM?THERAPY DURATION: 453 DAYS
     Route: 048
  4. BISOPROLOL [Concomitant]
     Active Substance: BISOPROLOL\BISOPROLOL FUMARATE
     Indication: Product used for unknown indication
     Dosage: AMOUNT: 350 MILLIGRAM?THERAPY DURATION: 453 DAYS
     Route: 048
  5. BISOPROLOL [Concomitant]
     Active Substance: BISOPROLOL\BISOPROLOL FUMARATE
     Indication: Schizophrenia
     Dosage: 1 EVERY 1 DAYS?AMOUNT: 5 MILLIGRAM
     Route: 048
  6. BISOPROLOL [Concomitant]
     Active Substance: BISOPROLOL\BISOPROLOL FUMARATE
     Indication: Product used for unknown indication
     Dosage: 1 EVERY 1 DAYS?AMOUNT: 5 MILLIGRAM
     Route: 048
  7. BISOPROLOL [Concomitant]
     Active Substance: BISOPROLOL\BISOPROLOL FUMARATE
     Indication: Schizophrenia
     Route: 048
  8. BISOPROLOL [Concomitant]
     Active Substance: BISOPROLOL\BISOPROLOL FUMARATE
     Indication: Product used for unknown indication
     Route: 048
  9. BISOPROLOL [Concomitant]
     Active Substance: BISOPROLOL\BISOPROLOL FUMARATE
     Indication: Schizophrenia
     Dosage: TABLETS DOSAGE FORM
     Route: 065
  10. BISOPROLOL [Concomitant]
     Active Substance: BISOPROLOL\BISOPROLOL FUMARATE
     Indication: Product used for unknown indication
     Dosage: TABLETS DOSAGE FORM
     Route: 065
  11. DOCUSATE [Concomitant]
     Active Substance: DOCUSATE
     Dosage: AMOUNT: 200 MILLIGRAM
     Route: 048
  12. GLYBURIDE [Concomitant]
     Active Substance: GLYBURIDE
     Dosage: 1 EVERY 1 DAYS?AMOUNT: 2.5 MILLIGRAM?UNKNOWN DOSAGE FORM
     Route: 048
  13. GLYBURIDE [Concomitant]
     Active Substance: GLYBURIDE
     Dosage: 1 EVERY 1 DAYS?AMOUNT: 5 MILLIGRAM?TABLETS DOSAGE FORM
     Route: 048
  14. LOXAPINE [Concomitant]
     Active Substance: LOXAPINE
     Dosage: AMOUNT: 25 MILLIGRAM?NOT SPECIFIED DOSAGE FORM
     Route: 048
  15. METFORMIN [Concomitant]
     Active Substance: METFORMIN HYDROCHLORIDE
     Dosage: 2 EVERY 1 DAYS?AMOUNT: 1000 MILLIGRAM
     Route: 048
  16. OMEGA-3 FATTY ACIDS [Concomitant]
     Active Substance: OMEGA-3 FATTY ACIDS
     Dosage: 1 EVERY 1 DAYS?AMOUNT: 1200 MILLIGRAM?THERAPY DURATION: 389 DAYS
     Route: 048
  17. RAMIPRIL [Concomitant]
     Active Substance: RAMIPRIL
     Dosage: AMOUNT: 5 MILLIGRAM?NOT SPECIFIED DOSAGE FORM
     Route: 048
  18. RANITIDINE [Concomitant]
     Active Substance: RANITIDINE
     Dosage: 1 EVERY 1 DAYS?AMOUNT: 300 MILLIGRAM
     Route: 048
  19. LINAGLIPTIN [Concomitant]
     Active Substance: LINAGLIPTIN
     Dosage: 1 EVERY 1 DAYS?AMOUNT: 5 MILLIGRAM?TABLETS DOSAGE FORM
     Route: 048
  20. VITAMIN D [Concomitant]
     Active Substance: VITAMIN D NOS
     Dosage: 1 EVERY 1 DAYS?AMOUNT: 1000 IU (INTERNATIONAL UNIT)?NOT SPECIFIED DOSAGE FORM?THERAPY DURATION: 389
     Route: 048

REACTIONS (2)
  - Death [Fatal]
  - Myocardial infarction [Fatal]
